FAERS Safety Report 16782853 (Version 1)
Quarter: 2019Q3

REPORT INFORMATION
  Report Type: Spontaneous
  Country: CR (occurrence: CR)
  Receive Date: 20190906
  Receipt Date: 20190906
  Transmission Date: 20191005
  Serious: Yes (Other)
  Sender: FDA-Public Use
  Company Number: PHHY2019CR207249

PATIENT
  Age: 52 Year
  Sex: Female

DRUGS (4)
  1. MELPHALAN. [Suspect]
     Active Substance: MELPHALAN
     Indication: BONE MARROW TRANSPLANT
     Dosage: UNK
     Route: 065
  2. FLUDARABINE [Suspect]
     Active Substance: FLUDARABINE PHOSPHATE
     Indication: BONE MARROW TRANSPLANT
     Dosage: UNK
     Route: 065
  3. MELPHALAN. [Suspect]
     Active Substance: MELPHALAN
     Indication: BONE MARROW CONDITIONING REGIMEN
  4. FLUDARABINE [Suspect]
     Active Substance: FLUDARABINE PHOSPHATE
     Indication: BONE MARROW CONDITIONING REGIMEN

REACTIONS (10)
  - Neutropenia [Unknown]
  - Pericardial effusion [Unknown]
  - Pain in extremity [Unknown]
  - Transplant failure [Unknown]
  - Delayed engraftment [Unknown]
  - Fungal infection [Unknown]
  - Skin injury [Unknown]
  - Pyrexia [Recovered/Resolved]
  - Ulcer [Unknown]
  - Product use in unapproved indication [Unknown]
